FAERS Safety Report 7008688-6 (Version None)
Quarter: 2010Q3

REPORT INFORMATION
  Report Type: 
  Country: None (occurrence: None)
  Receive Date: 20100922
  Receipt Date: 20100914
  Transmission Date: 20110219
  Serious: Yes (Congenital Anomaly)
  Sender: FDA-Public Use
  Company Number: US-MERCK-1009USA03227B1

PATIENT
  Age: 0 Day

DRUGS (3)
  1. ISENTRESS [Suspect]
     Route: 064
  2. INTELENCE [Suspect]
     Route: 064
  3. EPZICOM [Suspect]
     Route: 064

REACTIONS (2)
  - DRUG EXPOSURE DURING PREGNANCY [None]
  - PYELOCALIECTASIS [None]
